FAERS Safety Report 12853446 (Version 1)
Quarter: 2016Q4

REPORT INFORMATION
  Report Type: Spontaneous
  Country: GB (occurrence: GB)
  Receive Date: 20161017
  Receipt Date: 20161017
  Transmission Date: 20170207
  Serious: Yes (Hospitalization)
  Sender: FDA-Public Use
  Company Number: GB-SUN PHARMACEUTICAL INDUSTRIES LTD-2016RR-125568

PATIENT

DRUGS (1)
  1. ISOTRETINOIN [Suspect]
     Active Substance: ISOTRETINOIN
     Indication: ACNE
     Route: 048
     Dates: start: 20160506, end: 20160908

REACTIONS (3)
  - Crohn^s disease [Unknown]
  - Dehydration [Unknown]
  - Diarrhoea [Unknown]

NARRATIVE: CASE EVENT DATE: 20160901
